FAERS Safety Report 4844813-0 (Version None)
Quarter: 2005Q4

REPORT INFORMATION
  Report Type: 
  Country: None (occurrence: None)
  Receive Date: 20051205
  Receipt Date: 20051128
  Transmission Date: 20060501
  Serious: Yes (Death)
  Sender: FDA-Public Use
  Company Number: US-JNJFOC-20051106537

PATIENT
  Sex: Female
  Weight: 51.71 kg

DRUGS (3)
  1. FENTANYL [Suspect]
     Indication: CANCER PAIN
     Route: 062
     Dates: start: 20050101, end: 20051125
  2. HYDROCODONE [Concomitant]
     Indication: CANCER PAIN
     Route: 048
     Dates: start: 20050101, end: 20051125
  3. XANAX [Concomitant]
     Indication: ANXIETY
     Route: 048
     Dates: start: 20050101, end: 20051125

REACTIONS (1)
  - PANCREATIC CARCINOMA [None]
